FAERS Safety Report 17669003 (Version 2)
Quarter: 2020Q2

REPORT INFORMATION
  Report Type: Spontaneous
  Country: RU (occurrence: RU)
  Receive Date: 20200415
  Receipt Date: 20200430
  Transmission Date: 20200713
  Serious: Yes (Hospitalization, Other)
  Sender: FDA-Public Use
  Company Number: RU-SA-2020SA093789

PATIENT
  Age: 64 Year
  Sex: Male

DRUGS (9)
  1. LANTUS [Suspect]
     Active Substance: INSULIN GLARGINE
     Indication: TYPE 2 DIABETES MELLITUS
     Dosage: 18 IU AT 8.00 IN THE MORNING AND 28-30 IU AT 22.00 IN THE EVENING
     Route: 058
  2. AMLODIPINE [Suspect]
     Active Substance: AMLODIPINE BESYLATE
     Route: 065
  3. GLYCINE. [Concomitant]
     Active Substance: GLYCINE
     Route: 065
  4. LANTUS [Suspect]
     Active Substance: INSULIN GLARGINE
     Dosage: UNK UNK, QD
     Route: 058
  5. ENALAPRIL [Concomitant]
     Active Substance: ENALAPRIL
     Route: 065
  6. OMEPRAZOLE. [Concomitant]
     Active Substance: OMEPRAZOLE
     Route: 065
  7. SPIRONOLACTONE. [Concomitant]
     Active Substance: SPIRONOLACTONE
     Route: 065
  8. BISOPROLOL SALT NOT SPECIFIED [Suspect]
     Active Substance: BISOPROLOL
     Indication: HYPERTENSION
     Dosage: 5 MG
     Route: 065
  9. ACTRAPID [Concomitant]
     Active Substance: INSULIN HUMAN
     Dosage: 12-14 IU BEFORE BREAKFAST, LUNCH AND DINNER 20-30 MINUTES BEFORE MEALS
     Route: 065

REACTIONS (4)
  - Cerebral artery stenosis [Unknown]
  - Vertebrobasilar stroke [Recovered/Resolved]
  - Inappropriate schedule of product administration [Unknown]
  - Hypercholesterolaemia [Unknown]

NARRATIVE: CASE EVENT DATE: 20200329
